FAERS Safety Report 5213543-8 (Version None)
Quarter: 2007Q1

REPORT INFORMATION
  Report Type: 
  Country: None (occurrence: None)
  Receive Date: 20070119
  Receipt Date: 20070115
  Transmission Date: 20070707
  Serious: Yes (Death, Other)
  Sender: FDA-Public Use
  Company Number: PHBS2007ES00506

PATIENT
  Age: 43 Year
  Sex: Male

DRUGS (9)
  1. IMATINIB MESYLATE [Suspect]
     Indication: ACUTE LYMPHOCYTIC LEUKAEMIA
     Dosage: 600 MG/DAY
     Route: 065
     Dates: start: 20020101
  2. VINCRISTINE [Concomitant]
  3. DAUNORUBICIN HCL [Concomitant]
  4. L-ASPARAGINASE [Concomitant]
  5. CYCLOPHOSPHAMIDE [Concomitant]
  6. PREDNISONE [Concomitant]
  7. METHOTREXATE [Concomitant]
     Route: 037
  8. CYTARABINE [Concomitant]
     Route: 037
  9. HYDROCORTISONE [Concomitant]
     Route: 037

REACTIONS (11)
  - HEPATIC FAILURE [None]
  - JAUNDICE [None]
  - LIVIDITY [None]
  - MULTI-ORGAN FAILURE [None]
  - PANCYTOPENIA [None]
  - PNEUMONIA [None]
  - RASH ERYTHEMATOUS [None]
  - RENAL FAILURE [None]
  - RESPIRATORY FAILURE [None]
  - SEPTIC SHOCK [None]
  - TOXIC SKIN ERUPTION [None]
